FAERS Safety Report 19711301 (Version 1)
Quarter: 2021Q3

REPORT INFORMATION
  Report Type: Spontaneous
  Country: DE (occurrence: DE)
  Receive Date: 20210817
  Receipt Date: 20210817
  Transmission Date: 20211014
  Serious: Yes (Hospitalization, Other)
  Sender: FDA-Public Use
  Company Number: DE-MYLANLABS-2021M1052001

PATIENT
  Age: 80 Year
  Sex: Male

DRUGS (8)
  1. GALANTAMINE. [Suspect]
     Active Substance: GALANTAMINE
     Indication: PRODUCT USED FOR UNKNOWN INDICATION
     Dosage: 8 MILLIGRAM, QD (8 MG, 0?0?1?0, TIME?RELEASE CAPSULES)
  2. LEVOTHYROXINENATRIUM TEVA [Concomitant]
     Dosage: 75 MICROGRAM, QD (75 UG, 1?0?0?0, TABLETS)
  3. ASPIRIN. [Concomitant]
     Active Substance: ASPIRIN
     Dosage: 100 MILLIGRAM, QD (100 MG, 1?0?0?0, TABLETS)
  4. GLIMEPIRID [Concomitant]
     Active Substance: GLIMEPIRIDE
     Dosage: 1 MILLIGRAM, QD (1 MG, 1?0?0?0, TABLETS)
  5. TAMSULOSIN [Concomitant]
     Active Substance: TAMSULOSIN
     Dosage: 0.4 MILLIGRAM, QD (0.4 MG, 0?0?1?0, TIME?RELEASE CAPSULES)
  6. RAMIPRIL. [Concomitant]
     Active Substance: RAMIPRIL
     Dosage: 5 MILLIGRAM, QD (5 MG, 0?0?1?0, TABLETS)
  7. ALLOPURINOL. [Concomitant]
     Active Substance: ALLOPURINOL
     Dosage: 150 MILLIGRAM, QD (300 MG, 0.5?0?0?0, TABLETS)
  8. PANTOPRAZOL                        /01263201/ [Concomitant]
     Active Substance: PANTOPRAZOLE
     Dosage: 20 MILLIGRAM (20 MG, AS NEEDED, TABLETS)

REACTIONS (5)
  - Syncope [Unknown]
  - Fall [Unknown]
  - Bradycardia [Unknown]
  - Dizziness [Unknown]
  - Fracture [Unknown]
